FAERS Safety Report 9857178 (Version 1)
Quarter: 2014Q1

REPORT INFORMATION
  Report Type: Spontaneous
  Country: GB (occurrence: GB)
  Receive Date: 20140130
  Receipt Date: 20140130
  Transmission Date: 20141002
  Serious: Yes (Other)
  Sender: FDA-Public Use
  Company Number: GB-ACTAVIS-2014-00912

PATIENT
  Age: 53 Year
  Sex: Female
  Weight: 65 kg

DRUGS (2)
  1. DOXYCYCLINE HYCLATE (UNKNOWN) [Suspect]
     Indication: MALARIA PROPHYLAXIS
     Dosage: UNK
     Route: 065
     Dates: start: 20140108
  2. CONJUGATED OESTROGENS EQUINE [Concomitant]
     Indication: PRODUCT USED FOR UNKNOWN INDICATION
     Dosage: UNK, UNKNOWN
     Route: 065
     Dates: start: 20131014, end: 20131111

REACTIONS (2)
  - Depression [Recovered/Resolved]
  - Hyperaesthesia [Recovered/Resolved]
